FAERS Safety Report 8289525-9 (Version None)
Quarter: 2012Q2

REPORT INFORMATION
  Report Type: 
  Country: None (occurrence: None)
  Receive Date: 20120417
  Receipt Date: 20120413
  Transmission Date: 20120825
  Serious: Yes (Hospitalization)
  Sender: FDA-Public Use
  Company Number: BE-PFIZER INC-2012089897

PATIENT
  Age: 60 Year
  Sex: Female
  Weight: 56 kg

DRUGS (3)
  1. SUTENT [Suspect]
     Indication: METASTATIC RENAL CELL CARCINOMA
     Dosage: 50 MG, 1X/DAY
     Route: 048
     Dates: start: 20080911, end: 20081121
  2. BISOPROLOL FUMARATE [Concomitant]
     Dosage: 5 MG, 1X/DAY
     Route: 048
  3. MARCUMAR [Concomitant]
     Dosage: UNK
     Route: 048

REACTIONS (1)
  - OESOPHAGEAL ULCER HAEMORRHAGE [None]
